FAERS Safety Report 4964265-X (Version None)
Quarter: 2006Q1

REPORT INFORMATION
  Report Type: 
  Country: None (occurrence: None)
  Receive Date: 20060331
  Receipt Date: 20060317
  Transmission Date: 20060701
  Serious: Yes (Other)
  Sender: FDA-Public Use
  Company Number: US017105

PATIENT
  Age: 83 Year
  Sex: Male

DRUGS (10)
  1. PROVIGIL [Suspect]
     Indication: FATIGUE
     Dosage: 200 MG QAM ORAL
     Route: 048
     Dates: start: 20041209, end: 20050701
  2. DIGOXIN [Concomitant]
  3. DILTIAZEM [Concomitant]
  4. MONOPRIL [Concomitant]
  5. PLAVIX [Concomitant]
  6. FLOMAX [Concomitant]
  7. ZETIA [Concomitant]
  8. ASPIRIN [Concomitant]
  9. CALCIUM GLUCONATE [Concomitant]
  10. QUININE [Concomitant]

REACTIONS (1)
  - TARDIVE DYSKINESIA [None]
